FAERS Safety Report 20115859 (Version 1)
Quarter: 2021Q4

REPORT INFORMATION
  Report Type: Spontaneous
  Country: ES (occurrence: ES)
  Receive Date: 20211126
  Receipt Date: 20211126
  Transmission Date: 20220303
  Serious: Yes (Hospitalization, Other)
  Sender: FDA-Public Use
  Company Number: None

PATIENT
  Age: 24 Year
  Sex: Female

DRUGS (5)
  1. LAMOTRIGINE [Suspect]
     Active Substance: LAMOTRIGINE
     Indication: Borderline personality disorder
     Dosage: 75 MG, QD
     Route: 048
     Dates: start: 20210315, end: 20210412
  2. ESCITALOPRAM [Concomitant]
     Active Substance: ESCITALOPRAM OXALATE
     Indication: Borderline personality disorder
     Dosage: 30 MG, QD
     Route: 048
     Dates: start: 20201209
  3. QUETIAPINE [Concomitant]
     Active Substance: QUETIAPINE
     Indication: Borderline personality disorder
     Dosage: 25 MG, QD
     Route: 048
     Dates: start: 20201209
  4. RIVOTRIL [Concomitant]
     Active Substance: CLONAZEPAM
     Indication: Borderline personality disorder
     Dosage: 1.5 MG, QD
     Route: 048
     Dates: start: 20201209
  5. LYRICA [Concomitant]
     Active Substance: PREGABALIN
     Indication: Borderline personality disorder
     Dosage: 100 MG, QD
     Route: 048
     Dates: start: 20210201, end: 20210301

REACTIONS (1)
  - Drug reaction with eosinophilia and systemic symptoms [Recovered/Resolved]

NARRATIVE: CASE EVENT DATE: 20210410
